FAERS Safety Report 7967775-6 (Version None)
Quarter: 2011Q4

REPORT INFORMATION
  Report Type: 
  Country: None (occurrence: None)
  Receive Date: 20111209
  Receipt Date: 20111129
  Transmission Date: 20120403
  Serious: Yes (Hospitalization)
  Sender: FDA-Public Use
  Company Number: US-BAYER-201033434NA

PATIENT
  Age: 44 Year
  Sex: Female

DRUGS (3)
  1. HEPARIN [Concomitant]
  2. YASMIN [Suspect]
     Indication: ORAL CONTRACEPTION
     Dosage: UNK UNK, UNK
     Route: 048
     Dates: start: 20040101, end: 20041001
  3. COUMADIN [Concomitant]

REACTIONS (3)
  - FEAR [None]
  - PAIN [None]
  - DEEP VEIN THROMBOSIS [None]
